FAERS Safety Report 7987709-8 (Version None)
Quarter: 2011Q4

REPORT INFORMATION
  Report Type: 
  Country: None (occurrence: None)
  Receive Date: 20111216
  Receipt Date: 20110428
  Transmission Date: 20120403
  Serious: No
  Sender: FDA-Public Use
  Company Number: US-BRISTOL-MYERS SQUIBB COMPANY-15705296

PATIENT
  Age: 5 Year
  Sex: Male

DRUGS (2)
  1. RISPERIDONE [Suspect]
     Dates: start: 20110421, end: 20110424
  2. ABILIFY [Suspect]
     Dosage: RESTART ON 25APR11

REACTIONS (2)
  - DRUG ADMINISTRATION ERROR [None]
  - DRUG INEFFECTIVE [None]
